FAERS Safety Report 5717265-6 (Version None)
Quarter: 2008Q2

REPORT INFORMATION
  Report Type: 
  Country: None (occurrence: None)
  Receive Date: 20080424
  Receipt Date: 20080416
  Transmission Date: 20081010
  Serious: Yes (Hospitalization)
  Sender: FDA-Public Use
  Company Number: PHEH2008US03820

PATIENT
  Age: 55 Year

DRUGS (1)
  1. RECLAST [Suspect]
     Dosage: 5 MG ONCE YEARLY
     Dates: start: 20080301, end: 20080301

REACTIONS (2)
  - DEHYDRATION [None]
  - INFLUENZA LIKE ILLNESS [None]
